FAERS Safety Report 15905567 (Version 2)
Quarter: 2019Q3

REPORT INFORMATION
  Report Type: Spontaneous
  Country: US (occurrence: US)
  Receive Date: 20190204
  Receipt Date: 20190819
  Transmission Date: 20191004
  Serious: No
  Sender: FDA-Public Use
  Company Number: US-MYLANLABS-2019M1004722

PATIENT
  Sex: Male
  Weight: 86 kg

DRUGS (1)
  1. FENTANYL TRANSDERMAL SYSTEM [Suspect]
     Active Substance: FENTANYL
     Indication: PAIN
     Dosage: 12 MICROGRAM, Q3D
     Route: 062
     Dates: start: 20190114

REACTIONS (3)
  - Product adhesion issue [Unknown]
  - Wrong technique in product usage process [Not Recovered/Not Resolved]
  - Product dose omission [Unknown]
